FAERS Safety Report 7510947-5 (Version None)
Quarter: 2011Q2

REPORT INFORMATION
  Report Type: 
  Country: None (occurrence: None)
  Receive Date: 20110531
  Receipt Date: 20110526
  Transmission Date: 20111010
  Serious: Yes (Hospitalization)
  Sender: FDA-Public Use
  Company Number: US-BRISTOL-MYERS SQUIBB COMPANY-15718612

PATIENT
  Age: 12 Year
  Sex: Male

DRUGS (1)
  1. ABILIFY [Suspect]
     Dosage: STARTED BEFORE 6 MONTHS 5MG MORNING AND 10MG AT NIGHT

REACTIONS (2)
  - PSEUDOMONAS INFECTION [None]
  - STAPHYLOCOCCAL INFECTION [None]
